FAERS Safety Report 7369292-3 (Version None)
Quarter: 2011Q1

REPORT INFORMATION
  Report Type: 
  Country: None (occurrence: None)
  Receive Date: 20110323
  Receipt Date: 20110316
  Transmission Date: 20110831
  Serious: Yes (Hospitalization, Congenital Anomaly)
  Sender: FDA-Public Use
  Company Number: A0919479A

PATIENT
  Sex: Male
  Weight: 1.8 kg

DRUGS (4)
  1. KLONOPIN [Concomitant]
  2. PROCARDIA [Concomitant]
     Dates: start: 20040301
  3. TRAZODONE [Concomitant]
  4. PAXIL CR [Suspect]
     Indication: ANXIETY DISORDER
     Dosage: 37.5MG PER DAY
     Route: 064

REACTIONS (3)
  - CLEFT LIP [None]
  - CLEFT PALATE [None]
  - DRUG EXPOSURE DURING PREGNANCY [None]
